FAERS Safety Report 5998541-9 (Version None)
Quarter: 2008Q4

REPORT INFORMATION
  Report Type: 
  Country: None (occurrence: None)
  Receive Date: 20081213
  Receipt Date: 20080711
  Transmission Date: 20090506
  Serious: No
  Sender: FDA-Public Use
  Company Number: US-AMGEN-KDL285616

PATIENT
  Sex: Male
  Weight: 91.3 kg

DRUGS (4)
  1. ENBREL [Suspect]
     Indication: RHEUMATOID ARTHRITIS
     Route: 058
     Dates: start: 20070601
  2. METHOTREXATE [Concomitant]
     Route: 048
     Dates: start: 20010101
  3. FOLIC ACID [Concomitant]
  4. INDERAL [Concomitant]

REACTIONS (7)
  - HEADACHE [None]
  - INFLAMMATION [None]
  - INJECTION SITE HAEMATOMA [None]
  - INTERVERTEBRAL DISC DEGENERATION [None]
  - MUSCULOSKELETAL PAIN [None]
  - NECK PAIN [None]
  - PAIN IN EXTREMITY [None]
